FAERS Safety Report 6155277-1 (Version None)
Quarter: 2009Q2

REPORT INFORMATION
  Report Type: 
  Country: None (occurrence: None)
  Receive Date: 20090415
  Receipt Date: 20090408
  Transmission Date: 20091009
  Serious: Yes (Hospitalization)
  Sender: FDA-Public Use
  Company Number: CA-SANOFI-SYNTHELABO-D01200500410

PATIENT
  Sex: Male
  Weight: 79.4 kg

DRUGS (16)
  1. ASPIRIN [Concomitant]
     Indication: ATRIAL FIBRILLATION
     Dosage: 81 MG
     Route: 048
     Dates: start: 20040610
  2. METOPROLOL TARTRATE [Concomitant]
     Route: 065
  3. LASIX [Concomitant]
     Dosage: 40 MG
     Route: 065
  4. AMIODARONE HCL [Concomitant]
     Dosage: 200 MG
     Route: 065
  5. DIDRONEL [Concomitant]
  6. CALCIUM REPLACEMENT [Concomitant]
  7. K-DUR [Concomitant]
     Dosage: 1500 MG
     Route: 065
  8. ALTACE [Concomitant]
     Dosage: 10 MG
     Route: 065
  9. OXAZEPAM [Concomitant]
  10. OXYBUTYNIN CHLORIDE [Concomitant]
     Dosage: 5 MG
     Route: 065
  11. FOLIC ACID [Concomitant]
     Dosage: 1 MG
     Route: 065
  12. PROSCAR [Concomitant]
     Dosage: 5 MG
     Route: 065
  13. IRBESARTAN [Suspect]
     Indication: ATRIAL FIBRILLATION
     Dosage: 150 MG/DAY FOR 2 WEEKS FOLLOWING BY 300 MG/DAY
     Route: 048
     Dates: start: 20040608, end: 20050111
  14. IRBESARTAN [Suspect]
     Route: 048
     Dates: start: 20040128
  15. CLOPIDOGREL [Suspect]
     Indication: ATRIAL FIBRILLATION
     Route: 048
     Dates: start: 20040610, end: 20050111
  16. CLOPIDOGREL [Suspect]
     Route: 048
     Dates: start: 20050121

REACTIONS (1)
  - COLITIS ISCHAEMIC [None]
